FAERS Safety Report 14023269 (Version 1)
Quarter: 2017Q3

REPORT INFORMATION
  Report Type: Spontaneous
  Country: DK (occurrence: DK)
  Receive Date: 20170929
  Receipt Date: 20170929
  Transmission Date: 20171128
  Serious: Yes (Hospitalization)
  Sender: FDA-Public Use
  Company Number: DK-PFIZER INC-2017417923

PATIENT
  Age: 91 Year
  Sex: Female

DRUGS (18)
  1. METOCLOPRAMIDE ^ORION^ [Suspect]
     Active Substance: METOCLOPRAMIDE
     Indication: NAUSEA
     Dosage: 10 MG TABLET PRN, MAXIMUM 3 TIMES DAILY
     Route: 048
     Dates: start: 201708, end: 20170912
  2. ALLOPURINOL. [Concomitant]
     Active Substance: ALLOPURINOL
     Indication: GOUT
     Dosage: 100 MG, 1X/DAY
     Route: 048
     Dates: start: 20170912
  3. FURIX [Concomitant]
     Active Substance: FUROSEMIDE
     Indication: DIURETIC THERAPY
     Dosage: 40 MG, 3X/DAY
     Route: 048
     Dates: start: 20130430
  4. PANODIL [Concomitant]
     Active Substance: ACETAMINOPHEN
     Indication: PAIN
     Dosage: 1000 MG; 2 TABLETS PRN, MAXIMUM 4 TIMES DAILY
     Route: 048
     Dates: start: 20161210
  5. PROLIA [Concomitant]
     Active Substance: DENOSUMAB
     Indication: OSTEOPOROSIS
     Dosage: 60 MG/ML
     Route: 058
     Dates: start: 20170502
  6. CONTALGIN [Suspect]
     Active Substance: MORPHINE SULFATE
     Indication: PAIN
     Dosage: 10 MG, TWICE DAILY
     Route: 048
     Dates: start: 20170908, end: 20170912
  7. KALEORID [Concomitant]
     Active Substance: POTASSIUM CHLORIDE
     Indication: MINERAL SUPPLEMENTATION
     Dosage: 750 MG, 2X/DAY
     Route: 048
     Dates: start: 20130430
  8. MYCOSTATIN [Concomitant]
     Active Substance: NYSTATIN
     Indication: ORAL FUNGAL INFECTION
     Dosage: 100000 IE/ML; 1 ML, FOUR TIMES DAILY
     Route: 048
     Dates: start: 20170904
  9. PANTOLOC /01263201/ [Concomitant]
     Active Substance: PANTOPRAZOLE SODIUM
     Indication: GASTROOESOPHAGEAL REFLUX PROPHYLAXIS
     Dosage: 40 MG; 1 TABLET PRN, MAXIMUM 1 DAILY
     Route: 048
     Dates: start: 20131219
  10. SALBUTAMOL [Concomitant]
     Active Substance: ALBUTEROL
     Indication: BRONCHOSPASM
     Dosage: 1 ASPIRATION PRN (200 MCG/DOSE)
     Route: 055
     Dates: start: 20170127
  11. HYDROXYUREA. [Concomitant]
     Active Substance: HYDROXYUREA
     Indication: ANAEMIA
     Dosage: 500 MG, 1X/DAY
     Route: 048
     Dates: start: 20170912
  12. MAGNESIUM HYDROXIDE. [Concomitant]
     Active Substance: MAGNESIUM HYDROXIDE
     Indication: CONSTIPATION
     Dosage: 500 MG; DOSE: 1-3 TABLETS PRN
     Route: 048
     Dates: start: 20170403
  13. UNIKALK BASIC [Concomitant]
     Indication: MINERAL SUPPLEMENTATION
     Dosage: 400 MG, 2X/DAY
     Route: 048
     Dates: start: 20170913
  14. ATORVASTATIN [Concomitant]
     Active Substance: ATORVASTATIN
     Indication: HYPERCHOLESTEROLAEMIA
     Dosage: 20 MG, 1X/DAY
     Route: 048
     Dates: start: 20151118
  15. COVERSYL NOVUM [Concomitant]
     Active Substance: PERINDOPRIL
     Indication: HYPERTENSION
     Dosage: 5 MG, 1X/DAY
     Route: 048
     Dates: start: 20160502
  16. METOPROLOL SUCCINATE. [Concomitant]
     Active Substance: METOPROLOL SUCCINATE
     Indication: HEART RATE IRREGULAR
     Dosage: 50 MG; DOSE: 1/2 TABLET MORNING, 1 TABLET EVENING
     Route: 048
     Dates: start: 20140620
  17. MORFIN /00036301/ [Concomitant]
     Active Substance: MORPHINE SULFATE
     Indication: PAIN
     Dosage: 10 MG; 1 TABLET PRN, MAXIMUM 3 TIMES DAILY
     Route: 048
     Dates: start: 20170908
  18. ENALAPRIL [Concomitant]
     Active Substance: ENALAPRIL
     Dosage: UNK
     Route: 048

REACTIONS (7)
  - Condition aggravated [Unknown]
  - Glomerular filtration rate decreased [Unknown]
  - Renal impairment [Unknown]
  - Asthenia [Unknown]
  - Confusional state [Unknown]
  - Cough [Unknown]
  - Nausea [Unknown]

NARRATIVE: CASE EVENT DATE: 201709
